FAERS Safety Report 15402601 (Version 1)
Quarter: 2018Q3

REPORT INFORMATION
  Report Type: Spontaneous
  Country: US (occurrence: US)
  Receive Date: 20180919
  Receipt Date: 20180919
  Transmission Date: 20181010
  Serious: Yes (Death)
  Sender: FDA-Public Use
  Company Number: US-ACTELION-A-NJ2015-113630

PATIENT
  Age: 77 Year
  Sex: Female

DRUGS (4)
  1. TYVASO [Concomitant]
     Active Substance: TREPROSTINIL
  2. REVATIO [Concomitant]
     Active Substance: SILDENAFIL CITRATE
  3. OPSUMIT [Suspect]
     Active Substance: MACITENTAN
     Indication: PULMONARY ARTERIAL HYPERTENSION
     Dosage: 10 MG, QD
     Route: 048
     Dates: start: 20140801
  4. TREPROSTINIL DIOLAMIN [Concomitant]
     Active Substance: TREPROSTINIL DIOLAMINE

REACTIONS (6)
  - Pruritus [Unknown]
  - Rhinorrhoea [Unknown]
  - Death [Fatal]
  - Sinus congestion [Unknown]
  - Dry mouth [Unknown]
  - Diarrhoea [Unknown]

NARRATIVE: CASE EVENT DATE: 20180909
